FAERS Safety Report 6870963-3 (Version None)
Quarter: 2010Q3

REPORT INFORMATION
  Report Type: 
  Country: None (occurrence: None)
  Receive Date: 20100723
  Receipt Date: 20100715
  Transmission Date: 20110219
  Serious: Yes (Death, Hospitalization)
  Sender: FDA-Public Use
  Company Number: DE-ELI_LILLY_AND_COMPANY-DE200912001088

PATIENT
  Sex: Female
  Weight: 59 kg

DRUGS (8)
  1. GEMCITABINE HCL [Suspect]
     Indication: BREAST CANCER METASTATIC
     Dosage: 2000 MG, DAY 1 + 8 EVERY 3 WEEKS
     Route: 042
     Dates: start: 20090916, end: 20090916
  2. PACLITAXEL [Suspect]
     Indication: BREAST CANCER METASTATIC
     Dosage: 280 MG, DAY 1 EVERY 3 WEEKS
     Route: 042
     Dates: start: 20090916, end: 20090916
  3. ONDANSETRON [Concomitant]
     Dosage: UNK, UNKNOWN
     Route: 065
     Dates: start: 20090916, end: 20090916
  4. RANITIDINE [Concomitant]
     Dosage: UNK, UNKNOWN
     Route: 065
     Dates: start: 20090916, end: 20090916
  5. CLEMASTINE FUMARATE [Concomitant]
     Dosage: UNK, UNKNOWN
     Route: 065
     Dates: start: 20090916, end: 20090916
  6. DEXAMETHASONE SODIUM PHOSPHATE [Concomitant]
     Dosage: UNK, UNKNOWN
     Route: 065
     Dates: start: 20090916, end: 20090916
  7. BONDRONAT /01304701/ [Concomitant]
     Indication: HYPERCALCAEMIA
     Dates: start: 20090909, end: 20090911
  8. FURESIS [Concomitant]
     Indication: RENAL FAILURE
     Dates: start: 20090914

REACTIONS (11)
  - ALANINE AMINOTRANSFERASE INCREASED [None]
  - ASCITES [None]
  - ASPARTATE AMINOTRANSFERASE INCREASED [None]
  - BLOOD CREATININE INCREASED [None]
  - DIARRHOEA HAEMORRHAGIC [None]
  - DISEASE PROGRESSION [None]
  - FATIGUE [None]
  - INFECTION [None]
  - MUCOSAL INFLAMMATION [None]
  - PANCYTOPENIA [None]
  - VOMITING [None]
